FAERS Safety Report 25568105 (Version 4)
Quarter: 2025Q3

REPORT INFORMATION
  Report Type: Report from Study
  Country: CA (occurrence: CA)
  Receive Date: 20250716
  Receipt Date: 20250825
  Transmission Date: 20251020
  Serious: Yes (Other)
  Sender: BAUSCH AND LOMB
  Company Number: CA-BAUSCH-BL-2023-007928

PATIENT
  Age: 47 Year
  Sex: Female

DRUGS (11)
  1. SILIQ [Suspect]
     Active Substance: BRODALUMAB
     Indication: Psoriasis
     Dosage: 210MG/1.5 ML, WEEKLY FOR WEEK 0, 1 AND 2
     Route: 058
     Dates: start: 20230502, end: 202305
  2. SILIQ [Suspect]
     Active Substance: BRODALUMAB
     Dosage: 210MG/1.5 ML, Q 2 WEEKS
     Route: 058
     Dates: start: 202306, end: 2023
  3. SILIQ [Suspect]
     Active Substance: BRODALUMAB
     Dosage: 210MG/1.5 ML, OFF LABEL-WEEKLY
     Route: 058
     Dates: start: 2023, end: 202405
  4. SILIQ [Suspect]
     Active Substance: BRODALUMAB
     Dosage: 210MG/1.5 ML, OFF LABEL-WEEKLY
     Route: 058
     Dates: start: 20241016
  5. OTEZLA [Suspect]
     Active Substance: APREMILAST
     Indication: Product used for unknown indication
     Route: 065
  6. TRINTELLIX [Concomitant]
     Active Substance: VORTIOXETINE HYDROBROMIDE
     Indication: Product used for unknown indication
     Route: 065
  7. CYMBALTA [Concomitant]
     Active Substance: DULOXETINE HYDROCHLORIDE
     Indication: Product used for unknown indication
     Route: 065
  8. BISOPROLOL [Concomitant]
     Active Substance: BISOPROLOL
     Indication: Product used for unknown indication
     Route: 065
  9. ALDACTONE [Concomitant]
     Active Substance: SPIRONOLACTONE
     Indication: Product used for unknown indication
     Route: 065
  10. ATORVASTATIN [Concomitant]
     Active Substance: ATORVASTATIN
     Indication: Product used for unknown indication
     Route: 065
  11. REXULTI [Concomitant]
     Active Substance: BREXPIPRAZOLE
     Indication: Product used for unknown indication
     Route: 065

REACTIONS (7)
  - Diabetic glaucoma [Not Recovered/Not Resolved]
  - Eye haemorrhage [Not Recovered/Not Resolved]
  - Psoriasis [Not Recovered/Not Resolved]
  - Treatment noncompliance [Unknown]
  - Off label use [Unknown]
  - Patient dissatisfaction with treatment [Unknown]
  - Therapy interrupted [Unknown]

NARRATIVE: CASE EVENT DATE: 20230101
